FAERS Safety Report 18198672 (Version 1)
Quarter: 2020Q3

REPORT INFORMATION
  Report Type: Spontaneous
  Country: US (occurrence: US)
  Receive Date: 20200826
  Receipt Date: 20200826
  Transmission Date: 20201103
  Serious: Yes (Hospitalization)
  Sender: FDA-Public Use
  Company Number: US-PFIZER INC-2020322720

PATIENT
  Age: 81 Year
  Sex: Female

DRUGS (2)
  1. INLYTA [Suspect]
     Active Substance: AXITINIB
     Dosage: UNK (DOSAGE: 6 MG)
  2. INLYTA [Suspect]
     Active Substance: AXITINIB
     Dosage: UNK (DOSAGE: 1MG)

REACTIONS (1)
  - Cardiac disorder [Unknown]
